FAERS Safety Report 4342283-2 (Version None)
Quarter: 2004Q2

REPORT INFORMATION
  Report Type: 
  Country: None (occurrence: None)
  Receive Date: 20040415
  Receipt Date: 20040405
  Transmission Date: 20050107
  Serious: Yes (Other)
  Sender: FDA-Public Use
  Company Number: 205529

PATIENT
  Age: 34 Year
  Sex: Male
  Weight: 89.8 kg

DRUGS (6)
  1. XOLAIR [Suspect]
     Indication: ASTHMA
     Dosage: 150 MG, SINGLE, SUBCUTANEOUS
     Route: 058
     Dates: start: 20040326, end: 20040326
  2. ADVAIR (SALMETEROL XINAFOATE FLUTICASONE PROPIONATE) [Concomitant]
  3. ALBUTEROL (ALBUTEROL, ALBUTEROL SULFATE) [Concomitant]
  4. ZYRTEK (CETIRIZINE HYDROCHLORIDE) [Concomitant]
  5. GUAIFENESIN (GUAIFENESIN) [Concomitant]
  6. FLONASE [Concomitant]

REACTIONS (4)
  - DRUG HYPERSENSITIVITY [None]
  - PARAESTHESIA [None]
  - SYNCOPE VASOVAGAL [None]
  - URTICARIA GENERALISED [None]
